FAERS Safety Report 18974921 (Version 2)
Quarter: 2021Q1

REPORT INFORMATION
  Report Type: Report from Study
  Country: US (occurrence: US)
  Receive Date: 20210305
  Receipt Date: 20210311
  Transmission Date: 20210420
  Serious: Yes (Death)
  Sender: FDA-Public Use
  Company Number: NVSC2021US051903

PATIENT
  Age: 69 Year
  Sex: Male

DRUGS (1)
  1. PIQRAY [Suspect]
     Active Substance: ALPELISIB
     Indication: PRODUCT USED FOR UNKNOWN INDICATION
     Dosage: 300 MG, BID
     Route: 048

REACTIONS (2)
  - Inappropriate schedule of product administration [Unknown]
  - Death [Fatal]

NARRATIVE: CASE EVENT DATE: 20210112
